FAERS Safety Report 5579905-4 (Version None)
Quarter: 2008Q1

REPORT INFORMATION
  Report Type: 
  Country: None (occurrence: None)
  Receive Date: 20080103
  Receipt Date: 20071226
  Transmission Date: 20080703
  Serious: Yes (Hospitalization, Disabling, Other)
  Sender: FDA-Public Use
  Company Number: US-JNJFOC-20071206057

PATIENT
  Sex: Female

DRUGS (2)
  1. REMICADE [Suspect]
     Route: 042
  2. REMICADE [Suspect]
     Indication: RHEUMATOID ARTHRITIS
     Route: 042

REACTIONS (7)
  - ANAPHYLACTIC SHOCK [None]
  - DEPRESSION [None]
  - DRUG EXPOSURE DURING PREGNANCY [None]
  - HYPOKINESIA [None]
  - INTENTIONAL SELF-INJURY [None]
  - NEOPLASM MALIGNANT [None]
  - SPEECH DISORDER [None]
